FAERS Safety Report 6482724-8 (Version None)
Quarter: 2009Q4

REPORT INFORMATION
  Report Type: 
  Country: None (occurrence: None)
  Receive Date: 20091203
  Receipt Date: 20091124
  Transmission Date: 20100525
  Serious: Yes (Hospitalization)
  Sender: FDA-Public Use
  Company Number: 2009AL007476

PATIENT
  Sex: Male

DRUGS (6)
  1. CITALOPRAM HYDROBROMIDE [Suspect]
     Indication: DEPRESSION
     Dosage: 20 MG; QD; PO
     Route: 048
     Dates: start: 20070301, end: 20070301
  2. VALPROIC ACID [Concomitant]
  3. ACETYLSALICYLIC ACID [Concomitant]
  4. DIGOXIN [Concomitant]
  5. RAMIPRIL [Concomitant]
  6. FUROSEMIDE [Concomitant]

REACTIONS (2)
  - HYPONATRAEMIA [None]
  - MENTAL DISORDER [None]
